FAERS Safety Report 7940948-4 (Version None)
Quarter: 2011Q4

REPORT INFORMATION
  Report Type: 
  Country: None (occurrence: None)
  Receive Date: 20111128
  Receipt Date: 20111117
  Transmission Date: 20120403
  Serious: Yes (Hospitalization)
  Sender: FDA-Public Use
  Company Number: CN-JNJFOC-20111108633

PATIENT
  Age: 55 Year
  Sex: Male

DRUGS (1)
  1. SPORANOX [Suspect]
     Indication: FUNGAL INFECTION
     Route: 042
     Dates: start: 20111113

REACTIONS (3)
  - ERYTHEMA [None]
  - EXTRAVASATION [None]
  - OEDEMA PERIPHERAL [None]
